FAERS Safety Report 8473674-6 (Version None)
Quarter: 2012Q2

REPORT INFORMATION
  Report Type: 
  Country: None (occurrence: None)
  Receive Date: 20120628
  Receipt Date: 20110921
  Transmission Date: 20120825
  Serious: Yes (Hospitalization, Other)
  Sender: FDA-Public Use
  Company Number: US-MYLANLABS-2011S1017504

PATIENT
  Age: 20 Year
  Sex: Male
  Weight: 62.5 kg

DRUGS (4)
  1. TEGRETOL [Suspect]
     Indication: CONVULSION
     Dates: start: 20110704
  2. BENZTROPINE MESYLATE [Concomitant]
  3. CLOZAPINE [Suspect]
     Route: 048
     Dates: start: 20110210, end: 20110728
  4. CLOZAPINE [Suspect]
     Indication: SCHIZOPHRENIA
     Route: 048
     Dates: start: 20110210, end: 20110728

REACTIONS (4)
  - LEUKOPENIA [None]
  - TACHYCARDIA [None]
  - GRANULOCYTOPENIA [None]
  - CONVULSION [None]
